FAERS Safety Report 5423787-8 (Version None)
Quarter: 2007Q3

REPORT INFORMATION
  Report Type: 
  Country: None (occurrence: None)
  Receive Date: 20070727
  Receipt Date: 20041028
  Transmission Date: 20080115
  Serious: Yes (Hospitalization)
  Sender: FDA-Public Use
  Company Number: THYM-10341

PATIENT
  Age: 71 Year
  Sex: Male
  Weight: 95 kg

DRUGS (18)
  1. THYMOGLOBULIN [Suspect]
     Indication: RENAL TRANSPLANT
     Dosage: 2 MG/KG IV
     Route: 042
     Dates: start: 20040831, end: 20040902
  2. CELLCEPT [Concomitant]
  3. PREDNISONE [Concomitant]
  4. GENGRAF [Concomitant]
  5. ALLOPURINOL [Concomitant]
  6. COLACE [Concomitant]
  7. BACTRIM [Concomitant]
  8. VALCYTE [Concomitant]
  9. NYSTATIN [Concomitant]
  10. PROTONIX [Concomitant]
  11. MULTI-VITAMIN [Concomitant]
  12. FOLIC ACID [Concomitant]
  13. VITAMIN B6 [Concomitant]
  14. VITAMIN B-12 [Concomitant]
  15. COUMADIN [Concomitant]
  16. ATENOLOL [Concomitant]
  17. LOPRESSOR [Concomitant]
  18. PHOSLO [Concomitant]

REACTIONS (3)
  - HAEMORRHAGE [None]
  - HYPOTENSION [None]
  - RENAL TUBULAR NECROSIS [None]
